FAERS Safety Report 6681111-7 (Version None)
Quarter: 2010Q2

REPORT INFORMATION
  Report Type: 
  Country: None (occurrence: None)
  Receive Date: 20100414
  Receipt Date: 20100407
  Transmission Date: 20101027
  Serious: Yes (Other)
  Sender: FDA-Public Use
  Company Number: US-ROCHE-690933

PATIENT
  Sex: Female
  Weight: 38.1 kg

DRUGS (11)
  1. BONIVA [Suspect]
     Indication: OSTEOPOROSIS
     Route: 065
     Dates: start: 20071015, end: 20100301
  2. LISINOPRIL [Concomitant]
     Dosage: AS PER NEEDED
  3. DYAZIDE [Concomitant]
     Dosage: 25/37.5
  4. MICRO-K [Concomitant]
     Dosage: 1 DAILY EXCEPT THREE TIIMES A DAY
  5. PRILOSEC [Concomitant]
     Dosage: AS NEEDED
  6. NITROGLYCERIN [Concomitant]
     Dosage: AS NEEDED, 1-3 ONCE A MONTH
  7. TYLENOL-500 [Concomitant]
     Dosage: AS NEEDED
  8. CALCIUM [Concomitant]
  9. ZINC [Concomitant]
  10. MYLANTA [Concomitant]
  11. PERIDEX [Concomitant]

REACTIONS (2)
  - MOUTH ULCERATION [None]
  - ORAL DISORDER [None]
